FAERS Safety Report 6427770-5 (Version None)
Quarter: 2009Q4

REPORT INFORMATION
  Report Type: 
  Country: None (occurrence: None)
  Receive Date: 20091030
  Receipt Date: 20091021
  Transmission Date: 20100525
  Serious: Yes (Other)
  Sender: FDA-Public Use
  Company Number: OSCN-PR-0910L-0465

PATIENT

DRUGS (5)
  1. OMNISCAN [Suspect]
     Indication: DRUG USE FOR UNKNOWN INDICATION
     Dosage: 0.1 MMOL/KG, SINGLE DOSE, I.V.; 0.4 MMOL/KG, SINGLE DOSE, I.V.
     Route: 042
     Dates: start: 20030312, end: 20030312
  2. OMNISCAN [Suspect]
     Indication: DRUG USE FOR UNKNOWN INDICATION
     Dosage: 0.1 MMOL/KG, SINGLE DOSE, I.V.; 0.4 MMOL/KG, SINGLE DOSE, I.V.
     Route: 042
     Dates: start: 20030331, end: 20030331
  3. OMNISCAN [Suspect]
     Indication: DRUG USE FOR UNKNOWN INDICATION
     Dosage: 0.1 MMOL/KG, SINGLE DOSE, I.V.; 0.4 MMOL/KG, SINGLE DOSE, I.V.
     Route: 042
     Dates: start: 20030401, end: 20030401
  4. OMNISCAN [Suspect]
     Indication: DRUG USE FOR UNKNOWN INDICATION
     Dosage: 0.1 MMOL/KG, SINGLE DOSE, I.V.; 0.4 MMOL/KG, SINGLE DOSE, I.V.
     Route: 042
     Dates: start: 20030505, end: 20030505
  5. PROHANCE [Concomitant]

REACTIONS (1)
  - NEPHROGENIC SYSTEMIC FIBROSIS [None]
